FAERS Safety Report 9170345 (Version 1)
Quarter: 2013Q1

REPORT INFORMATION
  Report Type: Spontaneous
  Country: BR (occurrence: BR)
  Receive Date: 20130319
  Receipt Date: 20130319
  Transmission Date: 20140127
  Serious: Yes (Other)
  Sender: FDA-Public Use
  Company Number: BR-SANOFI-AVENTIS-2013SA025651

PATIENT
  Age: 74 Year
  Sex: Female
  Weight: 70 kg

DRUGS (1)
  1. LANTUS [Suspect]
     Indication: DIABETES MELLITUS
     Dosage: TAKEN FROM:3 YEARS AGO
     Route: 065

REACTIONS (2)
  - Renal disorder [Unknown]
  - Urinary incontinence [Unknown]
